FAERS Safety Report 5463339-7 (Version None)
Quarter: 2007Q3

REPORT INFORMATION
  Report Type: 
  Country: None (occurrence: None)
  Receive Date: 20070920
  Receipt Date: 20070912
  Transmission Date: 20080115
  Serious: Yes (Hospitalization)
  Sender: FDA-Public Use
  Company Number: AU-ELI_LILLY_AND_COMPANY-AU200709002116

PATIENT
  Age: 88 Year
  Sex: Male

DRUGS (5)
  1. FORTEO [Suspect]
     Indication: OSTEOPOROSIS
     Dosage: 20 UG, DAILY (1/D)
     Route: 065
     Dates: start: 20070830
  2. PLENDIL [Concomitant]
     Dosage: UNK, UNKNOWN
     Route: 065
  3. ISOPTIN [Concomitant]
     Dosage: UNK, UNKNOWN
     Route: 065
  4. ZYLOPRIM [Concomitant]
     Dosage: UNK, UNKNOWN
     Route: 065
  5. ANDROCUR [Concomitant]
     Dosage: UNK, UNKNOWN
     Route: 065

REACTIONS (2)
  - HYPERCALCAEMIA [None]
  - RENAL FAILURE [None]
